FAERS Safety Report 5081567-X (Version None)
Quarter: 2006Q3

REPORT INFORMATION
  Report Type: 
  Country: None (occurrence: None)
  Receive Date: 20060811
  Receipt Date: 20060801
  Transmission Date: 20061208
  Serious: Yes (Hospitalization)
  Sender: FDA-Public Use
  Company Number: 228244

PATIENT
  Age: 57 Year
  Sex: Female
  Weight: 55.3 kg

DRUGS (18)
  1. AVASTIN [Suspect]
     Indication: SMALL CELL LUNG CANCER STAGE UNSPECIFIED
  2. IRINOTECAN HCL [Suspect]
     Indication: SMALL CELL LUNG CANCER STAGE UNSPECIFIED
     Dosage: 97 MG, INTRAVENOUS
     Route: 042
     Dates: start: 20060427
  3. CARBOPLATIN [Suspect]
     Indication: SMALL CELL LUNG CANCER STAGE UNSPECIFIED
     Dosage: 466 MG, INTRAVENOUS
     Route: 042
     Dates: start: 20060427
  4. RADIATION THERAPY (RADIATION THERAPY) [Suspect]
     Indication: SMALL CELL LUNG CANCER STAGE UNSPECIFIED
     Dosage: 6000C GY
     Dates: start: 20060626
  5. DIOVAN [Concomitant]
  6. LEVBID (HYOSCYAMINE SULFATE) [Concomitant]
  7. PREVACID [Concomitant]
  8. SPIRIVA [Concomitant]
  9. ADVAIR DISKUS 100/50 [Concomitant]
  10. ALBUTEROL INHALER (ALBUTEROL/ALBUTEROL SULFATE) [Concomitant]
  11. PHENERGAN (PROMETHAZINE HYDROCHLORIDE) [Concomitant]
  12. BENTYL [Concomitant]
  13. MUCOSITIS MOUTHWASH (MYLANTA/BENADRYL/NYSTATI (ALUMINUM HYDROXIDE, DIP [Concomitant]
  14. LEXAPRO [Concomitant]
  15. ATARAX [Concomitant]
  16. OXYFAST (OXYCODONE HYDROCHLORIDE) [Concomitant]
  17. ATIVAN [Concomitant]
  18. CARAFATE [Concomitant]

REACTIONS (6)
  - ANION GAP INCREASED [None]
  - BLOOD CHLORIDE DECREASED [None]
  - BLOOD SODIUM DECREASED [None]
  - HAEMATOCRIT DECREASED [None]
  - HAEMOGLOBIN DECREASED [None]
  - OESOPHAGITIS [None]
